FAERS Safety Report 5890343-7 (Version None)
Quarter: 2008Q3

REPORT INFORMATION
  Report Type: 
  Country: None (occurrence: None)
  Receive Date: 20080918
  Receipt Date: 20080911
  Transmission Date: 20090109
  Serious: Yes (Hospitalization)
  Sender: FDA-Public Use
  Company Number: 2006BI016084

PATIENT
  Age: 63 Year
  Sex: Female

DRUGS (4)
  1. AVONEX [Suspect]
     Indication: MULTIPLE SCLEROSIS
     Dosage: 30 UG; QW; IM, 30 UG; QW; IM
     Route: 030
     Dates: start: 20021026
  2. DIOVAN (CON.) [Concomitant]
  3. CALCIUM (CON.) [Concomitant]
  4. BABY ASA (CON.) [Concomitant]

REACTIONS (3)
  - RADICULOPATHY [None]
  - SPINAL COLUMN STENOSIS [None]
  - SPONDYLITIS [None]
